FAERS Safety Report 11976998 (Version 1)
Quarter: 2016Q1

REPORT INFORMATION
  Report Type: Spontaneous
  Country: US (occurrence: US)
  Receive Date: 20160129
  Receipt Date: 20160129
  Transmission Date: 20160526
  Serious: No
  Sender: FDA-Public Use
  Company Number: US-PERRIGO-15US003191

PATIENT
  Age: 46 Year
  Sex: Male
  Weight: 69.84 kg

DRUGS (2)
  1. IBUPROFEN AND DIPHENHYDRAMINE CITRATE [Suspect]
     Active Substance: DIPHENHYDRAMINE CITRATE\IBUPROFEN
     Indication: WRONG DRUG ADMINISTERED
     Dosage: 2 TABLETS, SINGLE AT 2200
     Route: 048
     Dates: start: 20150318, end: 20150318
  2. IBUPROFEN AND DIPHENHYDRAMINE CITRATE [Suspect]
     Active Substance: DIPHENHYDRAMINE CITRATE\IBUPROFEN
     Indication: PRODUCT USED FOR UNKNOWN INDICATION
     Dosage: 2 TABLETS, SINGLE AT 1135
     Route: 048
     Dates: start: 20150319, end: 20150319

REACTIONS (6)
  - Accidental overdose [Recovered/Resolved]
  - Nasal dryness [Unknown]
  - Faeces discoloured [Unknown]
  - Wrong drug administered [Recovered/Resolved]
  - Dry mouth [Unknown]
  - Diarrhoea [Unknown]

NARRATIVE: CASE EVENT DATE: 20150319
